FAERS Safety Report 12872829 (Version 2)
Quarter: 2016Q4

REPORT INFORMATION
  Report Type: Spontaneous
  Country: US (occurrence: US)
  Receive Date: 20161021
  Receipt Date: 20161027
  Transmission Date: 20170207
  Serious: No
  Sender: FDA-Public Use
  Company Number: US-ELI_LILLY_AND_COMPANY-US201610001709

PATIENT
  Sex: Male

DRUGS (1)
  1. TRULICITY [Suspect]
     Active Substance: DULAGLUTIDE
     Indication: TYPE 2 DIABETES MELLITUS
     Dosage: 0.75 MG, WEEKLY (1/W)
     Route: 065

REACTIONS (6)
  - Drug administered at inappropriate site [Unknown]
  - Pain in extremity [Recovered/Resolved]
  - Poisoning [Unknown]
  - Nausea [Unknown]
  - Hypoglycaemia [Unknown]
  - Vomiting [Unknown]
